FAERS Safety Report 14609393 (Version 1)
Quarter: 2018Q1

REPORT INFORMATION
  Report Type: Spontaneous
  Country: US (occurrence: US)
  Receive Date: 20180306
  Receipt Date: 20180306
  Transmission Date: 20180509
  Serious: Yes (Other)
  Sender: FDA-Public Use
  Company Number: None

PATIENT
  Age: 80 Year

DRUGS (2)
  1. BUPIVACAINE SPINAL [Suspect]
     Active Substance: BUPIVACAINE
     Route: 008
  2. BUPIVACAINE SPINAL [Suspect]
     Active Substance: BUPIVACAINE

REACTIONS (4)
  - Product quality issue [None]
  - Inadequate analgesia [None]
  - Anaesthetic complication [None]
  - Drug ineffective [None]

NARRATIVE: CASE EVENT DATE: 20180305
